FAERS Safety Report 14260439 (Version 1)
Quarter: 2017Q4

REPORT INFORMATION
  Report Type: Spontaneous
  Country: KR (occurrence: KR)
  Receive Date: 20171207
  Receipt Date: 20171207
  Transmission Date: 20180321
  Serious: Yes (Death)
  Sender: FDA-Public Use
  Company Number: PHHY2017KR176484

PATIENT
  Age: 38 Year
  Sex: Female

DRUGS (3)
  1. FLUDARABINE [Suspect]
     Active Substance: FLUDARABINE PHOSPHATE
     Indication: CHRONIC LYMPHOCYTIC LEUKAEMIA REFRACTORY
     Route: 065
  2. CYCLOPHOSPHAMIDE. [Suspect]
     Active Substance: CYCLOPHOSPHAMIDE
     Indication: CHRONIC LYMPHOCYTIC LEUKAEMIA REFRACTORY
     Route: 065
  3. RITUXIMAB. [Suspect]
     Active Substance: RITUXIMAB
     Indication: CHRONIC LYMPHOCYTIC LEUKAEMIA REFRACTORY
     Route: 065

REACTIONS (9)
  - Toothache [Fatal]
  - Swelling face [Fatal]
  - Neutropenia [Fatal]
  - Pyrexia [Fatal]
  - Cellulitis [Fatal]
  - Febrile neutropenia [Fatal]
  - Mucormycosis [Fatal]
  - Myositis [Fatal]
  - Gingivitis ulcerative [Fatal]
